FAERS Safety Report 5576974-2 (Version None)
Quarter: 2007Q4

REPORT INFORMATION
  Report Type: 
  Country: None (occurrence: None)
  Receive Date: 20071228
  Receipt Date: 20071226
  Transmission Date: 20080405
  Serious: Yes (Disabling)
  Sender: FDA-Public Use
  Company Number: BR-AVENTIS-200721700GDDC

PATIENT
  Age: 51 Year
  Sex: Male
  Weight: 64 kg

DRUGS (5)
  1. LANTUS [Suspect]
     Route: 058
     Dates: start: 20020101
  2. OPTIPEN (INSULIN PUMP) [Suspect]
     Route: 058
  3. VIT B COMPLEX [Concomitant]
     Dosage: DOSE QUANTITY: 3
     Route: 048
     Dates: start: 20060101
  4. STRESSTABS                         /00512101/ [Concomitant]
     Dosage: DOSE QUANTITY: 1
     Route: 048
     Dates: start: 20060101
  5. ATENSINA [Concomitant]
     Indication: BLOOD PRESSURE
     Dosage: DOSE QUANTITY: 1
     Route: 048
     Dates: start: 20040101

REACTIONS (3)
  - APPLICATION SITE PAIN [None]
  - OFF LABEL USE [None]
  - VISUAL DISTURBANCE [None]
